FAERS Safety Report 9101449 (Version 1)
Quarter: 2013Q1

REPORT INFORMATION
  Report Type: Spontaneous
  Country: US (occurrence: US)
  Receive Date: 20130218
  Receipt Date: 20130218
  Transmission Date: 20140127
  Serious: No
  Sender: FDA-Public Use
  Company Number: US-ABBOTT-12P-163-0966279-00

PATIENT
  Age: 64 Year
  Sex: Male
  Weight: 81.72 kg

DRUGS (3)
  1. SIMCOR [Suspect]
     Indication: OFF LABEL USE
     Dosage: AT BEDTIME
     Dates: start: 20120803
  2. DIOVAN [Concomitant]
     Indication: HYPERTENSION
  3. ALLOPURINOL [Concomitant]
     Indication: GOUT

REACTIONS (3)
  - Off label use [Unknown]
  - Flushing [Recovered/Resolved]
  - Pruritus [Recovered/Resolved]
